FAERS Safety Report 5730702-6 (Version None)
Quarter: 2008Q2

REPORT INFORMATION
  Report Type: 
  Country: None (occurrence: None)
  Receive Date: 20080507
  Receipt Date: 20080428
  Transmission Date: 20081010
  Serious: Yes (Hospitalization)
  Sender: FDA-Public Use
  Company Number: BR-PFIZER INC-2007105849

PATIENT
  Sex: Male

DRUGS (4)
  1. LIPITOR [Suspect]
     Indication: BLOOD TRIGLYCERIDES ABNORMAL
     Route: 048
  2. PAROXETINE HCL [Concomitant]
     Indication: PANIC DISORDER
  3. CLONAZEPAM [Concomitant]
     Indication: ANXIETY
  4. AAS [Concomitant]

REACTIONS (4)
  - ARTERIAL OCCLUSIVE DISEASE [None]
  - COMPLICATIONS OF TRANSPLANT SURGERY [None]
  - LIVER DISORDER [None]
  - SPIDER NAEVUS [None]
